FAERS Safety Report 6717043-5 (Version None)
Quarter: 2010Q2

REPORT INFORMATION
  Report Type: 
  Country: None (occurrence: None)
  Receive Date: 20100510
  Receipt Date: 20100406
  Transmission Date: 20101027
  Serious: No
  Sender: FDA-Public Use
  Company Number: US-BAYER-201014020BCC

PATIENT
  Age: 18 Year
  Sex: Male
  Weight: 79 kg

DRUGS (3)
  1. ALEVE (CAPLET) [Suspect]
     Indication: PAIN IN EXTREMITY
     Dosage: TOTAL DAILY DOSE: 1320 MG  UNIT DOSE: 220 MG
     Route: 048
     Dates: start: 20100406
  2. UNKNOWN ANTIBIOTIC [Concomitant]
     Route: 065
  3. CRANBERRY PILLS [Concomitant]
     Route: 065

REACTIONS (3)
  - DIZZINESS [None]
  - EUPHORIC MOOD [None]
  - FEELING HOT [None]
